FAERS Safety Report 8777899 (Version 1)
Quarter: 2012Q4

REPORT INFORMATION
  Report Type: Report from Study
  Country: US (occurrence: US)
  Receive Date: 20120912
  Receipt Date: 20120912
  Transmission Date: 20130627
  Serious: Yes (Other)
  Sender: FDA-Public Use
  Company Number: US-VERTEX PHARMACEUTICAL INC.-AE-2012-004326

PATIENT

DRUGS (10)
  1. INCIVEK [Suspect]
     Indication: HEPATITIS C
     Route: 048
     Dates: start: 20120314, end: 20120608
  2. PEGASYS [Concomitant]
     Indication: HEPATITIS C
     Route: 058
     Dates: start: 20120314
  3. RIBAVIRIN [Concomitant]
     Indication: HEPATITIS C
     Route: 048
     Dates: start: 20120314
  4. METOPROLOL [Concomitant]
  5. MICARDIS [Concomitant]
  6. OMEPRAZOLE [Concomitant]
  7. MULTIVITAMIN [Concomitant]
  8. ROBITUSSIN [Concomitant]
  9. TEMAZEPAM [Concomitant]
  10. PROMETHAZINE [Concomitant]

REACTIONS (4)
  - Anaemia [Unknown]
  - Insomnia [Unknown]
  - Abdominal discomfort [Unknown]
  - Nausea [Unknown]
